FAERS Safety Report 9420668 (Version 2)
Quarter: 2013Q3

REPORT INFORMATION
  Report Type: Report from Study
  Country: DE (occurrence: DE)
  Receive Date: 20130725
  Receipt Date: 20130816
  Transmission Date: 20140515
  Serious: Yes (Other)
  Sender: FDA-Public Use
  Company Number: PHHY2013DE077464

PATIENT
  Age: 46 Year
  Sex: Female
  Weight: 73 kg

DRUGS (9)
  1. GILENYA [Suspect]
     Indication: MULTIPLE SCLEROSIS
     Dosage: 0.5 MG, UNK
     Route: 048
     Dates: start: 20121203, end: 201305
  2. GILENYA [Suspect]
     Dosage: 0.5 MG, UNK
     Route: 048
     Dates: start: 20130712
  3. NITROGLYCERIN [Concomitant]
  4. ANTICOAGULANTS [Concomitant]
  5. CITALOPRAM [Concomitant]
     Indication: DEPRESSION
     Dosage: 40 MG, QD
  6. OMEPRAZOLE [Concomitant]
     Indication: DYSPEPSIA
     Dosage: 60 MG, QD
  7. SYMBICORT [Concomitant]
     Indication: ASTHMA
  8. L-THYROXINE [Concomitant]
     Dosage: 50 UG, QD
  9. BISOPROLOL [Concomitant]
     Dosage: 5 MG, QD

REACTIONS (9)
  - Cardiac disorder [Unknown]
  - Dyspnoea [Not Recovered/Not Resolved]
  - Chest pain [Not Recovered/Not Resolved]
  - Nausea [Not Recovered/Not Resolved]
  - Vomiting [Not Recovered/Not Resolved]
  - Hyperhidrosis [Unknown]
  - Pain in extremity [Unknown]
  - Dizziness [Unknown]
  - Chest discomfort [Unknown]
